FAERS Safety Report 12722094 (Version 3)
Quarter: 2017Q4

REPORT INFORMATION
  Report Type: Spontaneous
  Country: FR (occurrence: FR)
  Receive Date: 20160907
  Receipt Date: 20171005
  Transmission Date: 20180320
  Serious: Yes (Other)
  Sender: FDA-Public Use
  Company Number: FR-TEVA-675090ISR

PATIENT
  Age: 39 Year
  Sex: Male
  Weight: 106 kg

DRUGS (2)
  1. ETOPOSIDE TEVA [Suspect]
     Active Substance: ETOPOSIDE
     Indication: ACUTE LYMPHOCYTIC LEUKAEMIA
     Dates: start: 20160208, end: 20160208
  2. ONDANSETRON ACCORD 8 MG [Suspect]
     Active Substance: ONDANSETRON
     Indication: PREMEDICATION
     Route: 042
     Dates: start: 20160208, end: 20160208

REACTIONS (4)
  - Spinal pain [Recovered/Resolved]
  - Atrial flutter [Recovered/Resolved]
  - Hot flush [Recovered/Resolved]
  - Hypersensitivity [Recovered/Resolved]

NARRATIVE: CASE EVENT DATE: 20160208
